FAERS Safety Report 10222291 (Version 1)
Quarter: 2014Q2

REPORT INFORMATION
  Report Type: Spontaneous
  Country: DE (occurrence: DE)
  Receive Date: 20140606
  Receipt Date: 20140606
  Transmission Date: 20141212
  Serious: Yes (Life-Threatening, Hospitalization)
  Sender: FDA-Public Use
  Company Number: DE-GLAXOSMITHKLINE-D0084209A

PATIENT
  Age: 50 Year
  Sex: Male
  Weight: 100 kg

DRUGS (5)
  1. DUODART [Suspect]
     Indication: PROSTATE CANCER METASTATIC
     Route: 048
     Dates: start: 201108
  2. ZYTIGA [Suspect]
     Indication: PROSTATE CANCER METASTATIC
     Route: 048
     Dates: start: 201108
  3. PREDNISOLON [Concomitant]
     Indication: PROSTATE CANCER METASTATIC
     Dosage: 5MG TWICE PER DAY
     Route: 048
     Dates: start: 201108
  4. DUROGESIC [Concomitant]
     Indication: CANCER PAIN
     Route: 062
  5. ZOMETA [Concomitant]
     Indication: METASTASES TO BONE
     Route: 042

REACTIONS (13)
  - Hepatic failure [Recovering/Resolving]
  - Drug-induced liver injury [Recovering/Resolving]
  - Jaundice [Recovering/Resolving]
  - Diarrhoea [Recovering/Resolving]
  - Transaminases increased [Recovering/Resolving]
  - Aspartate aminotransferase increased [Recovering/Resolving]
  - Alanine aminotransferase increased [Recovering/Resolving]
  - Gamma-glutamyltransferase increased [Recovering/Resolving]
  - Blood alkaline phosphatase increased [Recovering/Resolving]
  - Blood lactate dehydrogenase increased [Recovering/Resolving]
  - Blood bilirubin increased [Recovering/Resolving]
  - Prothrombin time prolonged [Recovering/Resolving]
  - Superinfection [Unknown]
